FAERS Safety Report 24124196 (Version 1)
Quarter: 2024Q3

REPORT INFORMATION
  Report Type: Spontaneous
  Country: US (occurrence: US)
  Receive Date: 20240723
  Receipt Date: 20240723
  Transmission Date: 20241017
  Serious: No
  Sender: BRISTOL MYERS SQUIBB
  Company Number: US-BRISTOL-MYERS SQUIBB COMPANY-2024-114844

PATIENT
  Age: 61 Year
  Sex: Male
  Weight: 90.72 kg

DRUGS (2)
  1. ABRAXANE [Suspect]
     Active Substance: PACLITAXEL
     Indication: Pancreatic carcinoma
     Dosage: DOSE : 300MG;     FREQ : EVERY 28 DAYS FOR 6 CYCLES
     Route: 041
  2. ABRAXANE [Suspect]
     Active Substance: PACLITAXEL
     Dosage: DOSE : 300MG; FREQ: EVERY 28 DAYS FOR 6 CYCLES
     Route: 041

REACTIONS (2)
  - Intercepted product preparation error [Unknown]
  - Off label use [Unknown]

NARRATIVE: CASE EVENT DATE: 20240709
